FAERS Safety Report 7013361-4 (Version None)
Quarter: 2010Q3

REPORT INFORMATION
  Report Type: 
  Country: None (occurrence: None)
  Receive Date: 20100924
  Receipt Date: 20100920
  Transmission Date: 20110219
  Serious: Yes (Death)
  Sender: FDA-Public Use
  Company Number: US-CELGENEUS-163-21880-10090452

PATIENT
  Sex: Male

DRUGS (4)
  1. REVLIMID [Suspect]
     Indication: MULTIPLE MYELOMA
     Route: 048
     Dates: start: 20091030, end: 20100701
  2. DECADRON [Concomitant]
     Indication: MULTIPLE MYELOMA
     Route: 048
     Dates: start: 20100409, end: 20100701
  3. ZOMETA [Concomitant]
     Indication: MULTIPLE MYELOMA
     Route: 051
     Dates: start: 20100430, end: 20100622
  4. KLONOPIN [Concomitant]
     Indication: MULTIPLE MYELOMA
     Route: 051
     Dates: start: 20100409, end: 20100814

REACTIONS (1)
  - MULTIPLE MYELOMA [None]
